FAERS Safety Report 26061136 (Version 1)
Quarter: 2025Q4

REPORT INFORMATION
  Report Type: Spontaneous
  Country: US (occurrence: US)
  Receive Date: 20251118
  Receipt Date: 20251118
  Transmission Date: 20260118
  Serious: No
  Sender: REGENERON
  Company Number: US-REGENERON PHARMACEUTICALS, INC.-2025-158379

PATIENT
  Age: 82 Year
  Sex: Male

DRUGS (1)
  1. LYNOZYFIC [Suspect]
     Active Substance: LINVOSELTAMAB-GCPT
     Indication: Product used for unknown indication
     Dosage: UNK
     Dates: start: 20251003

REACTIONS (1)
  - Infusion related reaction [Recovered/Resolved]
